FAERS Safety Report 6041131-2 (Version None)
Quarter: 2009Q1

REPORT INFORMATION
  Report Type: 
  Country: None (occurrence: None)
  Receive Date: 20090116
  Receipt Date: 20080829
  Transmission Date: 20090719
  Serious: No
  Sender: FDA-Public Use
  Company Number: US-BRISTOL-MYERS SQUIBB COMPANY-14319818

PATIENT
  Age: 37 Year
  Sex: Female

DRUGS (2)
  1. ABILIFY [Suspect]
     Indication: SCHIZOPHRENIA
     Dosage: DURATION: 4-6 MONTHS, INITIAL DOSE: 10 MG,INCREASED TO 20MG, THEN TO 30MG DOSE DECREASED TO 20MG
  2. REMERON [Concomitant]

REACTIONS (1)
  - AKATHISIA [None]
